FAERS Safety Report 8173345 (Version 7)
Quarter: 2015Q4

REPORT INFORMATION
  Report Type: Spontaneous
  Country: US (occurrence: US)
  Receive Date: 20111007
  Receipt Date: 20151029
  Transmission Date: 20160305
  Serious: Yes (Life-Threatening, Hospitalization, Other)
  Sender: FDA-Public Use
  Company Number: US-ASTRAZENECA-2009UW05597

PATIENT
  Age: 58 Year
  Sex: Female
  Weight: 79.4 kg

DRUGS (13)
  1. XANAX [Concomitant]
     Active Substance: ALPRAZOLAM
  2. SYMBICORT [Suspect]
     Active Substance: BUDESONIDE\FORMOTEROL FUMARATE DIHYDRATE
     Indication: ASTHMA
     Dosage: 80/4.5 MCG, TWO PUFFS, UNKNOWN FREQUENCY
     Route: 055
  3. NEXIUM I.V. [Suspect]
     Active Substance: ESOMEPRAZOLE SODIUM
     Route: 042
  4. SEROQUEL [Suspect]
     Active Substance: QUETIAPINE FUMARATE
     Indication: INAPPROPRIATE AFFECT
     Route: 048
  5. NEXIUM [Suspect]
     Active Substance: ESOMEPRAZOLE MAGNESIUM
     Indication: GASTROOESOPHAGEAL REFLUX DISEASE
     Route: 048
  6. SEROQUEL [Suspect]
     Active Substance: QUETIAPINE FUMARATE
     Indication: INAPPROPRIATE AFFECT
     Route: 048
     Dates: start: 2007
  7. SEROQUEL [Suspect]
     Active Substance: QUETIAPINE FUMARATE
     Indication: INAPPROPRIATE AFFECT
     Route: 048
  8. LISINOPRIL. [Concomitant]
     Active Substance: LISINOPRIL
  9. SYMBICORT [Suspect]
     Active Substance: BUDESONIDE\FORMOTEROL FUMARATE DIHYDRATE
     Indication: ASTHMA
     Dosage: 80/4.5 MCG, TWO PUFFS, BID
     Route: 055
  10. NEXIUM [Suspect]
     Active Substance: ESOMEPRAZOLE MAGNESIUM
     Indication: BARRETT^S OESOPHAGUS
     Route: 048
  11. SEROQUEL [Suspect]
     Active Substance: QUETIAPINE FUMARATE
     Indication: INAPPROPRIATE AFFECT
     Route: 048
  12. ALBUTEROL. [Concomitant]
     Active Substance: ALBUTEROL
  13. ADVAIR HFA [Concomitant]
     Active Substance: FLUTICASONE PROPIONATE\SALMETEROL XINAFOATE

REACTIONS (32)
  - Suicidal ideation [Not Recovered/Not Resolved]
  - Blindness [Unknown]
  - Pain [Unknown]
  - Insomnia [Unknown]
  - Gastrooesophageal reflux disease [Unknown]
  - Memory impairment [Unknown]
  - Dyspnoea exertional [Unknown]
  - Weight increased [Unknown]
  - Agitation [Unknown]
  - Mood swings [Unknown]
  - Haemoptysis [Unknown]
  - Malaise [Unknown]
  - Liver disorder [Unknown]
  - Asthma [Unknown]
  - Pneumonia [Unknown]
  - Depression [Unknown]
  - Gastric disorder [Unknown]
  - Frustration [Not Recovered/Not Resolved]
  - Hearing impaired [Unknown]
  - Hernia [Unknown]
  - Aggression [Unknown]
  - Headache [Unknown]
  - Intentional product misuse [Unknown]
  - Chronic obstructive pulmonary disease [Unknown]
  - Drug withdrawal syndrome [Unknown]
  - Diabetes mellitus [Unknown]
  - Drug dose omission [Unknown]
  - Feeding disorder [Unknown]
  - Ulcer [Unknown]
  - Barrett^s oesophagus [Unknown]
  - Thyroid neoplasm [Unknown]
  - Anxiety [Unknown]

NARRATIVE: CASE EVENT DATE: 2013
